FAERS Safety Report 24913713 (Version 3)
Quarter: 2025Q1

REPORT INFORMATION
  Report Type: Report from Study
  Country: CA (occurrence: CA)
  Receive Date: 20250202
  Receipt Date: 20250311
  Transmission Date: 20250409
  Serious: Yes (Other)
  Sender: ALEXION PHARMACEUTICALS
  Company Number: CA-AstraZeneca-CH-00778205A

PATIENT

DRUGS (1)
  1. DURVALUMAB [Suspect]
     Active Substance: DURVALUMAB
     Dosage: 1500 MILLIGRAM, Q4W

REACTIONS (5)
  - Abscess [Unknown]
  - Pneumonia [Unknown]
  - Rash [Unknown]
  - Pyrexia [Unknown]
  - Product administration interrupted [Unknown]
